FAERS Safety Report 16236625 (Version 1)
Quarter: 2019Q2

REPORT INFORMATION
  Report Type: Spontaneous
  Country: JP (occurrence: JP)
  Receive Date: 20190425
  Receipt Date: 20190425
  Transmission Date: 20190711
  Serious: Yes (Life-Threatening, Other)
  Sender: FDA-Public Use
  Company Number: JP-SAKK-2019SA051522AA

PATIENT
  Age: 70 Year
  Sex: Male
  Weight: 62.4 kg

DRUGS (11)
  1. ZALTRAP [Suspect]
     Active Substance: ZIV-AFLIBERCEPT
     Indication: COLON CANCER
     Dosage: 240 MG, 1X
     Route: 041
     Dates: start: 20190123, end: 20190123
  2. FLUOROURACIL. [Concomitant]
     Active Substance: FLUOROURACIL
     Dosage: 3910 MG/46 HR
     Route: 042
     Dates: start: 20190123
  3. LEVOFOLINATE [CALCIUM LEVOFOLINATE] [Concomitant]
     Active Substance: LEVOLEUCOVORIN CALCIUM
     Indication: COLON CANCER
     Dosage: 325 MG, 1X
     Route: 041
     Dates: start: 20190123, end: 20190123
  4. IRINOTECAN HYDROCHLORIDE. [Concomitant]
     Active Substance: IRINOTECAN HYDROCHLORIDE
     Indication: COLON CANCER
     Dosage: 240 MG, 1X
     Route: 041
     Dates: start: 20190123, end: 20190123
  5. ISOTONIC SODIUM CHLORIDE SOLUTION [Concomitant]
     Active Substance: SODIUM CHLORIDE
     Indication: PRODUCT USED FOR UNKNOWN INDICATION
     Dosage: UNK
     Route: 065
     Dates: start: 20190123, end: 20190123
  6. GRANISETRON [GRANISETRON HYDROCHLORIDE] [Concomitant]
     Active Substance: GRANISETRON HYDROCHLORIDE
     Indication: PRODUCT USED FOR UNKNOWN INDICATION
     Dosage: 3 MG, 1X
     Route: 042
     Dates: start: 20190123, end: 20190123
  7. FLUOROURACIL. [Concomitant]
     Active Substance: FLUOROURACIL
     Indication: COLON CANCER
     Dosage: 650 MG, 1X
     Route: 042
     Dates: start: 20190123, end: 20190123
  8. HEPARIN [Concomitant]
     Active Substance: HEPARIN SODIUM
     Indication: PRODUCT USED FOR UNKNOWN INDICATION
     Dosage: 10000 U/DAY
     Route: 042
  9. DEXART [Concomitant]
     Active Substance: DEXAMETHASONE SODIUM PHOSPHATE
     Indication: PRODUCT USED FOR UNKNOWN INDICATION
     Dosage: 3.3 MG, 1X
     Route: 042
     Dates: start: 20190123, end: 20190123
  10. PROEMEND [Concomitant]
     Active Substance: FOSAPREPITANT
     Indication: PRODUCT USED FOR UNKNOWN INDICATION
     Dosage: 150 MG, 1X
     Route: 042
     Dates: start: 20190123, end: 20190123
  11. DEXART [Concomitant]
     Active Substance: DEXAMETHASONE SODIUM PHOSPHATE
     Dosage: 6.6 MG/DAY
     Route: 042

REACTIONS (7)
  - Nephrotic syndrome [Recovering/Resolving]
  - Dizziness [Recovering/Resolving]
  - Language disorder [Recovering/Resolving]
  - Hypoalbuminaemia [Recovering/Resolving]
  - Altered state of consciousness [Recovering/Resolving]
  - Liver disorder [Recovering/Resolving]
  - Tonic convulsion [Recovering/Resolving]

NARRATIVE: CASE EVENT DATE: 20190125
